FAERS Safety Report 6608469-9 (Version None)
Quarter: 2010Q1

REPORT INFORMATION
  Report Type: 
  Country: None (occurrence: None)
  Receive Date: 20100301
  Receipt Date: 20100225
  Transmission Date: 20100710
  Serious: Yes (Death, Hospitalization)
  Sender: FDA-Public Use
  Company Number: LB-MERCK-1002USA03869

PATIENT
  Sex: Male

DRUGS (4)
  1. JANUVIA [Suspect]
     Indication: BLOOD GLUCOSE INCREASED
     Route: 048
  2. JANUVIA [Suspect]
     Indication: CARDIAC DISORDER
     Route: 048
  3. JANUMET [Suspect]
     Route: 048
  4. CRESTOR [Concomitant]
     Route: 065

REACTIONS (2)
  - DEATH [None]
  - HYPOGLYCAEMIA [None]
